FAERS Safety Report 18108291 (Version 1)
Quarter: 2020Q3

REPORT INFORMATION
  Report Type: Spontaneous
  Country: ES (occurrence: ES)
  Receive Date: 20200804
  Receipt Date: 20200804
  Transmission Date: 20201103
  Serious: Yes (Death, Hospitalization)
  Sender: FDA-Public Use
  Company Number: ES-MYLANLABS-2020M1069363

PATIENT
  Age: 41 Year
  Sex: Male

DRUGS (6)
  1. DIAZEPAM. [Suspect]
     Active Substance: DIAZEPAM
     Indication: PRODUCT USED FOR UNKNOWN INDICATION
     Dosage: 2 MILLIGRAM, AT NIGHT
     Route: 065
  2. VENLAFAXINE [Suspect]
     Active Substance: VENLAFAXINE HYDROCHLORIDE
     Indication: ADJUSTMENT DISORDER WITH DEPRESSED MOOD
     Dosage: 150 MILLIGRAM, QD
     Route: 065
  3. BERIPLEX HS [Concomitant]
     Active Substance: COAGULATION FACTOR IX HUMAN\COAGULATION FACTOR VII HUMAN\COAGULATION FACTOR X HUMAN\PROTEIN C\PROTEIN S HUMAN\PROTHROMBIN
     Indication: EAR HAEMORRHAGE
     Dosage: 4 VIALS
     Route: 065
  4. PARACETAMOL/TRAMADOL [Suspect]
     Active Substance: ACETAMINOPHEN\TRAMADOL
     Indication: SPINAL OSTEOARTHRITIS
     Dosage: UNK
     Route: 065
  5. LACTATED RINGERS SOLUTION [Concomitant]
     Active Substance: CALCIUM CHLORIDE\POTASSIUM CHLORIDE\SODIUM CHLORIDE\SODIUM LACTATE
     Indication: EAR HAEMORRHAGE
     Dosage: 3 LITRES
     Route: 065
  6. MIDAZOLAM. [Concomitant]
     Active Substance: MIDAZOLAM
     Indication: PRODUCT USED FOR UNKNOWN INDICATION
     Dosage: 15 MILLIGRAM
     Route: 065

REACTIONS (16)
  - Cognitive disorder [Unknown]
  - Toxicity to various agents [Unknown]
  - Fall [Unknown]
  - Skull fractured base [Unknown]
  - Pulse absent [Fatal]
  - Bradycardia [Fatal]
  - Confusional state [Unknown]
  - Dizziness [Unknown]
  - Mydriasis [Unknown]
  - Ear haemorrhage [Fatal]
  - Sensory disturbance [Unknown]
  - Craniocerebral injury [Fatal]
  - Hypotension [Fatal]
  - Coma [Fatal]
  - Pulmonary contusion [Fatal]
  - Forearm fracture [Unknown]
